FAERS Safety Report 7130684-9 (Version None)
Quarter: 2010Q4

REPORT INFORMATION
  Report Type: 
  Country: None (occurrence: None)
  Receive Date: 20101201
  Receipt Date: 20101117
  Transmission Date: 20110411
  Serious: Yes (Hospitalization, Other)
  Sender: FDA-Public Use
  Company Number: US-ELI_LILLY_AND_COMPANY-US201006003264

PATIENT
  Sex: Male

DRUGS (7)
  1. HUMALOG [Suspect]
     Indication: TYPE 2 DIABETES MELLITUS
     Dosage: 12 U, 3/D
  2. HUMALOG [Suspect]
     Dosage: UNK, AS NEEDED
  3. HUMALOG [Suspect]
     Dosage: 12 U, 3/D
  4. HUMALOG [Suspect]
     Dosage: UNK, AS NEEDED
  5. HUMALOG [Suspect]
     Dosage: 12 U, 3/D
  6. HUMALOG [Suspect]
     Dosage: UNK, AS NEEDED
  7. LANTUS [Concomitant]

REACTIONS (15)
  - BLOOD GLUCOSE DECREASED [None]
  - BLOOD GLUCOSE FLUCTUATION [None]
  - BLOOD GLUCOSE INCREASED [None]
  - COLITIS ULCERATIVE [None]
  - DRUG DOSE OMISSION [None]
  - DRUG INEFFECTIVE [None]
  - FATIGUE [None]
  - FEELING ABNORMAL [None]
  - INCORRECT DOSE ADMINISTERED [None]
  - INFECTION [None]
  - KNEE OPERATION [None]
  - NASOPHARYNGITIS [None]
  - SEPSIS [None]
  - SHOCK HYPOGLYCAEMIC [None]
  - SHOULDER OPERATION [None]
